FAERS Safety Report 6343781-2 (Version None)
Quarter: 2009Q3

REPORT INFORMATION
  Report Type: 
  Country: None (occurrence: None)
  Receive Date: 20090908
  Receipt Date: 20090827
  Transmission Date: 20100115
  Serious: Yes (Hospitalization)
  Sender: FDA-Public Use
  Company Number: B0590573A

PATIENT
  Sex: Female

DRUGS (5)
  1. RELENZA [Suspect]
     Indication: INFLUENZA
     Dosage: 10MG TWICE PER DAY
     Route: 055
     Dates: start: 20090817, end: 20090817
  2. CALONAL [Concomitant]
     Dosage: 200MG PER DAY
     Route: 048
     Dates: start: 20090817, end: 20090817
  3. MUCODYNE [Concomitant]
     Indication: ASTHMA
     Dosage: 750MG PER DAY
     Route: 048
     Dates: start: 20090817
  4. HOKUNALIN [Concomitant]
     Indication: ASTHMA
     Dosage: 1MG PER DAY
     Route: 062
     Dates: start: 20090817, end: 20090817
  5. UNKNOWN DRUG [Concomitant]
     Route: 065

REACTIONS (6)
  - ABNORMAL BEHAVIOUR [None]
  - ALTERED STATE OF CONSCIOUSNESS [None]
  - ASTHMA [None]
  - BODY TEMPERATURE INCREASED [None]
  - CRYING [None]
  - DELIRIUM FEBRILE [None]
